FAERS Safety Report 6662311-9 (Version None)
Quarter: 2010Q1

REPORT INFORMATION
  Report Type: 
  Country: None (occurrence: None)
  Receive Date: 20100331
  Receipt Date: 20100329
  Transmission Date: 20100710
  Serious: Yes (Other)
  Sender: FDA-Public Use
  Company Number: PHEH2006US15191

PATIENT
  Sex: Male

DRUGS (3)
  1. ZOMETA [Suspect]
  2. PREDNISONE [Concomitant]
  3. PROSCAR [Concomitant]

REACTIONS (5)
  - ANXIETY [None]
  - DECREASED INTEREST [None]
  - GENERAL PHYSICAL HEALTH DETERIORATION [None]
  - OSTEONECROSIS [None]
  - PAIN [None]
